FAERS Safety Report 15530390 (Version 6)
Quarter: 2019Q1

REPORT INFORMATION
  Report Type: Spontaneous
  Country: US (occurrence: US)
  Receive Date: 20181018
  Receipt Date: 20190128
  Transmission Date: 20190417
  Serious: Yes (Hospitalization)
  Sender: FDA-Public Use
  Company Number: US-ACTELION-A-US2018-180190

PATIENT
  Age: 63 Year
  Sex: Female
  Weight: 58.5 kg

DRUGS (4)
  1. VELETRI [Suspect]
     Active Substance: EPOPROSTENOL
     Indication: PULMONARY HYPERTENSION
     Dosage: 8 NG/KG, PER MIN
     Route: 042
  2. VELETRI [Suspect]
     Active Substance: EPOPROSTENOL
     Dosage: 23 NG/KG, PER MIN
     Route: 042
  3. VELETRI [Suspect]
     Active Substance: EPOPROSTENOL
     Dosage: 25 NG/KG, PER MIN
     Route: 042
  4. NIFEDIPINE. [Concomitant]
     Active Substance: NIFEDIPINE

REACTIONS (7)
  - Dyspnoea [Recovering/Resolving]
  - Gout [Unknown]
  - Hypersensitivity [Unknown]
  - Wrong dose [Recovered/Resolved]
  - Syncope [Recovered/Resolved]
  - Pleural effusion [Unknown]
  - Laboratory test abnormal [Unknown]
